FAERS Safety Report 4666973-7 (Version None)
Quarter: 2005Q2

REPORT INFORMATION
  Report Type: 
  Country: None (occurrence: None)
  Receive Date: 20050516
  Receipt Date: 20050131
  Transmission Date: 20051028
  Serious: Yes (Hospitalization)
  Sender: FDA-Public Use
  Company Number: APP200500066

PATIENT
  Age: 38 Year
  Sex: Female
  Weight: 90.7194 kg

DRUGS (12)
  1. VANCOMYCIN HYDROCHLORIDE [Suspect]
     Indication: CELLULITIS
     Dosage: 2 GM (1 GM, 2 IN 1 D), INTRAVENOUS
     Route: 042
     Dates: start: 20050121
  2. VANCOMYCIN HYDROCHLORIDE [Suspect]
     Indication: STAPHYLOCOCCAL INFECTION
     Dosage: 2 GM (1 GM, 2 IN 1 D), INTRAVENOUS
     Route: 042
     Dates: start: 20050121
  3. VANCOMYCIN HYDROCHLORIDE [Suspect]
  4. ASPIRIN [Concomitant]
  5. CLINDAMYCIN [Concomitant]
  6. LANTUS INSULIN (INSULIN GLARGINE) [Concomitant]
  7. LIPITOR [Concomitant]
  8. PRINIVIL [Concomitant]
  9. ZETIA [Concomitant]
  10. PROTONIX (PANTOPRAZOLE SODOUM) [Concomitant]
  11. HUMALOG INSULIN (INSULIN LISPRO) [Concomitant]
  12. DARVOCET [Concomitant]

REACTIONS (2)
  - DYSPNOEA [None]
  - NAUSEA [None]
